FAERS Safety Report 9224226 (Version 1)
Quarter: 2013Q2

REPORT INFORMATION
  Report Type: Spontaneous
  Country: US (occurrence: US)
  Receive Date: 20130411
  Receipt Date: 20130411
  Transmission Date: 20140414
  Serious: No
  Sender: FDA-Public Use
  Company Number: US-009507513-1304USA001253

PATIENT
  Age: 49 Year
  Sex: Male

DRUGS (3)
  1. ZOCOR [Suspect]
     Indication: BLOOD CHOLESTEROL INCREASED
     Dosage: 20 MG, QD
     Route: 048
     Dates: start: 201204, end: 20130329
  2. RAMIPRIL [Concomitant]
  3. INSULIN [Concomitant]

REACTIONS (2)
  - Delirium [Recovering/Resolving]
  - Insomnia [Recovering/Resolving]
